FAERS Safety Report 4272649-0 (Version None)
Quarter: 2004Q1

REPORT INFORMATION
  Report Type: 
  Country: None (occurrence: None)
  Receive Date: 20040115
  Receipt Date: 20040115
  Transmission Date: 20041129
  Serious: Yes (Life-Threatening, Hospitalization)
  Sender: FDA-Public Use
  Company Number: None

PATIENT
  Sex: Female
  Weight: 43.5453 kg

DRUGS (2)
  1. OPTIRAY 350 [Suspect]
     Indication: ANGIOGRAM
     Dosage: 30-60 ML
     Dates: start: 20030814
  2. OPTIRAY 350 [Suspect]
     Indication: AORTOGRAM
     Dosage: 30-60 ML
     Dates: start: 20030814

REACTIONS (3)
  - DYSPNOEA [None]
  - PROCEDURAL COMPLICATION [None]
  - PRURITUS [None]
